FAERS Safety Report 9773677 (Version 1)
Quarter: 2013Q4

REPORT INFORMATION
  Report Type: Spontaneous
  Country: AU (occurrence: None)
  Receive Date: 20131218
  Receipt Date: 20131218
  Transmission Date: 20140711
  Serious: Yes (Other)
  Sender: FDA-Public Use
  Company Number: 2013000340

PATIENT
  Age: 84 Year
  Sex: Female

DRUGS (4)
  1. ACEON [Suspect]
     Indication: PRODUCT USED FOR UNKNOWN INDICATION
  2. CARDIZEM (DILTIAZEM HYDROCHLORIDE) [Concomitant]
  3. NEXIUM (ESOMEPRAZOLE  MAGNESIUM) [Concomitant]
  4. ASPIRIN (ASPIRIN) [Concomitant]

REACTIONS (3)
  - Dysaesthesia pharynx [None]
  - Angioedema [None]
  - Lip oedema [None]
